FAERS Safety Report 7250141-9 (Version None)
Quarter: 2011Q1

REPORT INFORMATION
  Report Type: 
  Country: None (occurrence: None)
  Receive Date: 20110118
  Receipt Date: 20110105
  Transmission Date: 20110831
  Serious: Yes (Hospitalization)
  Sender: FDA-Public Use
  Company Number: 025009

PATIENT
  Sex: Female
  Weight: 94 kg

DRUGS (8)
  1. METHYLPREDNISOLON /00049601/ [Concomitant]
  2. CERTOLIZUMAB PEGOL (CERTOLIZUMAB PEGOL) [Suspect]
     Indication: RHEUMATOID ARTHRITIS
     Dosage: (200 MG 1X/2 WEEKS SUBCUTANEOUS), (400 MG 1X/2 WEEKS SUBCUTANEOUS),
     Route: 058
     Dates: start: 20071227, end: 20100721
  3. CERTOLIZUMAB PEGOL (CERTOLIZUMAB PEGOL) [Suspect]
     Indication: RHEUMATOID ARTHRITIS
     Dosage: (200 MG 1X/2 WEEKS SUBCUTANEOUS), (400 MG 1X/2 WEEKS SUBCUTANEOUS),
     Route: 058
     Dates: start: 20050908, end: 20071212
  4. CERTOLIZUMAB PEGOL (CERTOLIZUMAB PEGOL) [Suspect]
     Indication: RHEUMATOID ARTHRITIS
     Dosage: (200 MG 1X/2 WEEKS SUBCUTANEOUS), (400 MG 1X/2 WEEKS SUBCUTANEOUS),
     Route: 058
     Dates: start: 20050505, end: 20050810
  5. FOLIC ACID [Concomitant]
  6. METHOTREXATE [Concomitant]
  7. SPIRONOLACTONE [Concomitant]
  8. CALCIGRAN /00434901/ [Concomitant]

REACTIONS (3)
  - THROMBOCYTOPENIA [None]
  - PNEUMONIA [None]
  - HYPERVOLAEMIA [None]
